FAERS Safety Report 7328561-3 (Version None)
Quarter: 2011Q1

REPORT INFORMATION
  Report Type: 
  Country: None (occurrence: None)
  Receive Date: 20110303
  Receipt Date: 20091130
  Transmission Date: 20110831
  Serious: Yes (Other)
  Sender: FDA-Public Use
  Company Number: US-BAYER-200941104NA

PATIENT
  Sex: Male
  Weight: 90.703 kg

DRUGS (15)
  1. RABEPRAZOLE SODIUM [Concomitant]
     Dosage: 20 MG, UNK
     Route: 048
  2. TRASYLOL [Suspect]
     Indication: CORONARY ARTERY BYPASS
     Dosage: UNK
     Route: 042
     Dates: start: 20030101
  3. ASPIRIN [Concomitant]
     Dosage: 325 MG, UNK
     Route: 048
  4. METOPROLOL [Concomitant]
     Dosage: 50 MG, UNK
     Route: 048
  5. NITROGLYCERIN [Concomitant]
     Route: 060
  6. RINGER LACTATE [CACL DIHYDR,KCL,NACL,NA+ LACT] [Concomitant]
     Route: 042
  7. HUMULIN [INSULIN HUMAN] [Concomitant]
     Dosage: 70/30
     Route: 058
     Dates: start: 19790101
  8. SIMVASTATIN [Concomitant]
     Dosage: 40 MG, UNK
     Route: 048
     Dates: start: 20070101
  9. NORMAL SALINE [Concomitant]
     Route: 042
  10. IPRATROPIUM BROMIDE [Concomitant]
  11. ANCEF [Concomitant]
     Route: 042
  12. LISINOPRIL [Concomitant]
     Dosage: 5 MG, UNK
     Route: 048
     Dates: start: 20040101
  13. PLAVIX [Concomitant]
     Dosage: 75 MG, UNK
     Route: 048
  14. HEPARIN [Concomitant]
     Dosage: 1000UNITS/ML 30ML
  15. FUROSEMIDE [Concomitant]
     Dosage: 20 MG, UNK
     Route: 048

REACTIONS (11)
  - ANHEDONIA [None]
  - CEREBROVASCULAR ACCIDENT [None]
  - INJURY [None]
  - EMOTIONAL DISTRESS [None]
  - STRESS [None]
  - ANXIETY [None]
  - FEAR [None]
  - MYOCARDIAL INFARCTION [None]
  - UNEVALUABLE EVENT [None]
  - PAIN [None]
  - DEPRESSION [None]
